FAERS Safety Report 18295709 (Version 1)
Quarter: 2020Q3

REPORT INFORMATION
  Report Type: Spontaneous
  Country: US (occurrence: US)
  Receive Date: 20200922
  Receipt Date: 20200922
  Transmission Date: 20201103
  Serious: No
  Sender: FDA-Public Use
  Company Number: US-AMARIN PHARMA, INC.-2020AMR000357

PATIENT
  Age: 72 Year
  Sex: Female
  Weight: 56.75 kg

DRUGS (1)
  1. VASCEPA [Suspect]
     Active Substance: ICOSAPENT ETHYL
     Indication: BLOOD CHOLESTEROL INCREASED
     Route: 048
     Dates: start: 20200516, end: 20200517

REACTIONS (9)
  - Visual impairment [Unknown]
  - Eye pain [Unknown]
  - Vertigo [Unknown]
  - Back pain [Unknown]
  - Asthenia [Unknown]
  - Balance disorder [Unknown]
  - Fatigue [Unknown]
  - Feeling abnormal [Unknown]
  - Arthralgia [Unknown]

NARRATIVE: CASE EVENT DATE: 20200517
